FAERS Safety Report 6018176-1 (Version None)
Quarter: 2008Q4

REPORT INFORMATION
  Report Type: 
  Country: None (occurrence: None)
  Receive Date: 20081223
  Receipt Date: 20081216
  Transmission Date: 20090506
  Serious: Yes (Death)
  Sender: FDA-Public Use
  Company Number: US-AVENTIS-200817868US

PATIENT
  Sex: Male
  Weight: 85.5 kg

DRUGS (20)
  1. LOVENOX [Suspect]
     Indication: ATRIAL FIBRILLATION
     Route: 058
     Dates: start: 20081113, end: 20081116
  2. PLAVIX [Suspect]
     Indication: MYOCARDIAL INFARCTION
     Dates: start: 20081113, end: 20081116
  3. ASPIRIN [Suspect]
     Indication: CORONARY ARTERY DISEASE
     Dates: start: 20081113, end: 20081116
  4. IMDUR [Suspect]
     Indication: CORONARY ARTERY DISEASE
     Dates: start: 20081113, end: 20081116
  5. CARVEDILOL [Suspect]
     Indication: CARDIAC FAILURE CONGESTIVE
     Dates: start: 20081113, end: 20081116
  6. DIGOXIN [Suspect]
     Indication: CARDIAC FAILURE CONGESTIVE
     Route: 048
     Dates: start: 20081113, end: 20081117
  7. LEVAQUIN [Suspect]
     Indication: WHITE BLOOD CELL COUNT INCREASED
     Route: 048
     Dates: start: 20081113, end: 20081117
  8. LEVAQUIN [Suspect]
     Indication: CHRONIC OBSTRUCTIVE PULMONARY DISEASE
     Route: 048
     Dates: start: 20081113, end: 20081117
  9. SOLU-MEDROL [Suspect]
     Indication: CHRONIC OBSTRUCTIVE PULMONARY DISEASE
     Route: 042
     Dates: start: 20081113, end: 20081115
  10. SPIRIVA [Concomitant]
     Dosage: DOSE: UNK
     Dates: end: 20081113
  11. ADVAIR DISKUS 250/50 [Concomitant]
     Dates: end: 20081113
  12. COMBIVENT                          /01033501/ [Concomitant]
     Dosage: DOSE: UNK
     Dates: end: 20081113
  13. PRILOSEC [Concomitant]
     Dates: end: 20081113
  14. BENICAR [Concomitant]
     Indication: CARDIAC FAILURE CONGESTIVE
     Route: 048
     Dates: end: 20081116
  15. LASIX [Concomitant]
     Dates: end: 20081113
  16. LASIX [Concomitant]
     Route: 042
     Dates: start: 20081113, end: 20081113
  17. NITROGLYCERIN [Concomitant]
     Dosage: DOSE: UNK
     Dates: end: 20081113
  18. OXYGEN [Concomitant]
     Dosage: DOSE: 6L CONTINUOUS
  19. BUPROPION HCL [Concomitant]
     Dates: end: 20081116
  20. PREVACID [Concomitant]
     Dates: start: 20081113, end: 20081117

REACTIONS (13)
  - ABDOMINAL PAIN [None]
  - ALCOHOL ABUSE [None]
  - ARTHRALGIA [None]
  - BRADYCARDIA [None]
  - CARDIAC FAILURE [None]
  - HAEMATOCRIT DECREASED [None]
  - HAEMOGLOBIN DECREASED [None]
  - HYPOAESTHESIA [None]
  - HYPOTENSION [None]
  - PAIN IN EXTREMITY [None]
  - RETROPERITONEAL HAEMORRHAGE [None]
  - TACHYCARDIA [None]
  - TROPONIN INCREASED [None]
